FAERS Safety Report 18058382 (Version 2)
Quarter: 2020Q3

REPORT INFORMATION
  Report Type: Spontaneous
  Country: NL (occurrence: NL)
  Receive Date: 20200723
  Receipt Date: 20200728
  Transmission Date: 20201103
  Serious: Yes (Other)
  Sender: FDA-Public Use
  Company Number: NVSC2020NL113770

PATIENT
  Age: 6 Decade
  Sex: Female
  Weight: 103.5 kg

DRUGS (11)
  1. CYCLOPHOSPHAMIDE. [Suspect]
     Active Substance: CYCLOPHOSPHAMIDE
     Indication: BONE MARROW CONDITIONING REGIMEN
     Dosage: 1125 MG, QD
     Route: 042
     Dates: start: 20191004, end: 20191006
  2. RIVAROXABAN [Concomitant]
     Active Substance: RIVAROXABAN
     Indication: PROPHYLAXIS
     Dosage: UNK
     Route: 065
     Dates: start: 20190822
  3. PARACETAMOL [Concomitant]
     Active Substance: ACETAMINOPHEN
     Indication: PRODUCT USED FOR UNKNOWN INDICATION
     Dosage: 1000 MG, ONCE
     Route: 048
     Dates: start: 20191007, end: 20191007
  4. FLUORODEOXYGLUCOSE F 18 [Concomitant]
     Active Substance: FLUDEOXYGLUCOSE F-18
     Indication: PRODUCT USED FOR UNKNOWN INDICATION
     Dosage: 328.5 MBQ, ONCE
     Route: 042
     Dates: start: 20191009, end: 20191009
  5. DIGOXINE [Concomitant]
     Active Substance: DIGOXIN
     Indication: HYPERLIPIDAEMIA
     Dosage: UNK
     Route: 065
     Dates: start: 20190506
  6. DIGOXINE [Concomitant]
     Active Substance: DIGOXIN
     Indication: ATRIAL FIBRILLATION
  7. FLUDARABINE SANDOZ [Suspect]
     Active Substance: FLUDARABINE PHOSPHATE
     Indication: BONE MARROW CONDITIONING REGIMEN
     Dosage: 67.5 OT, QD
     Route: 042
     Dates: start: 20191004, end: 20191006
  8. NATRIUM CHLORIDUM [Concomitant]
     Active Substance: SODIUM CHLORIDE
     Indication: PRODUCT USED FOR UNKNOWN INDICATION
     Dosage: 1000 ML, QD
     Route: 042
     Dates: start: 20191006, end: 20191008
  9. METOPROLOL. [Concomitant]
     Active Substance: METOPROLOL
     Indication: HYPERTENSION
     Dosage: UNK
     Route: 065
     Dates: start: 20190506
  10. RIVAROXABAN [Concomitant]
     Active Substance: RIVAROXABAN
     Indication: ATRIAL FIBRILLATION
     Dosage: UNK
     Route: 065
     Dates: start: 20190506, end: 20191005
  11. CLEMASTINE [Concomitant]
     Active Substance: CLEMASTINE
     Indication: PRODUCT USED FOR UNKNOWN INDICATION
     Dosage: 2 MG, ONCE
     Route: 042
     Dates: start: 20191009, end: 20191010

REACTIONS (4)
  - Disease recurrence [Not Recovered/Not Resolved]
  - Hyponatraemia [Recovered/Resolved]
  - Bronchitis [Recovered/Resolved]
  - Viral skin infection [Recovered/Resolved]

NARRATIVE: CASE EVENT DATE: 20191014
